FAERS Safety Report 8053842-8 (Version None)
Quarter: 2012Q1

REPORT INFORMATION
  Report Type: 
  Country: None (occurrence: None)
  Receive Date: 20120118
  Receipt Date: 20120113
  Transmission Date: 20120608
  Serious: Yes (Other)
  Sender: FDA-Public Use
  Company Number: BR-PFIZER INC-2012011585

PATIENT
  Age: 45 Year
  Sex: Male
  Weight: 70 kg

DRUGS (3)
  1. ALPRAZOLAM [Suspect]
     Indication: ANXIETY
     Dosage: 6 MG DAILY
     Route: 048
     Dates: start: 20060101
  2. ALPRAZOLAM [Suspect]
     Indication: DEPRESSION
     Dosage: 4MG DAILY
     Route: 048
  3. ALPRAZOLAM [Suspect]
     Indication: PANIC DISORDER
     Dosage: 2MG DAILY
     Route: 048
     Dates: start: 20111201

REACTIONS (8)
  - LIVER DISORDER [None]
  - ASTHENIA [None]
  - PANCREATIC DISORDER [None]
  - PAIN [None]
  - WEIGHT INCREASED [None]
  - HUNGER [None]
  - HEADACHE [None]
  - FEELING ABNORMAL [None]
